FAERS Safety Report 8442674-4 (Version None)
Quarter: 2012Q2

REPORT INFORMATION
  Report Type: 
  Country: None (occurrence: None)
  Receive Date: 20120615
  Receipt Date: 20111130
  Transmission Date: 20120825
  Serious: No
  Sender: FDA-Public Use
  Company Number: US-NOVEN-11US003718

PATIENT
  Sex: Female

DRUGS (2)
  1. DAYTRANA [Suspect]
     Indication: ATTENTION DEFICIT/HYPERACTIVITY DISORDER
     Dosage: 15 MG, QD
     Route: 062
     Dates: start: 20111101
  2. DAYTRANA [Suspect]
     Dosage: UNK

REACTIONS (6)
  - APPLICATION SITE BLEEDING [None]
  - RASH [None]
  - EXPIRED DRUG ADMINISTERED [None]
  - PRURITUS [None]
  - APPLICATION SITE SWELLING [None]
  - DRUG ADMINISTERED AT INAPPROPRIATE SITE [None]
